FAERS Safety Report 6475240-0 (Version None)
Quarter: 2009Q4

REPORT INFORMATION
  Report Type: 
  Country: None (occurrence: None)
  Receive Date: 20091204
  Receipt Date: 20091124
  Transmission Date: 20100525
  Serious: Yes (Other)
  Sender: FDA-Public Use
  Company Number: US-PURDUE-USA-2009-0041231

PATIENT
  Sex: Male

DRUGS (8)
  1. OXYCONTIN [Suspect]
     Indication: BACK PAIN
     Dosage: 30 MG, TID
     Dates: start: 20060101
  2. DRONEDARONE [Suspect]
     Indication: ARRHYTHMIA
     Dosage: 40 MG, BID
     Dates: start: 20091102
  3. SENNA-MINT WAF [Concomitant]
     Dosage: UNK
     Dates: start: 20030101
  4. CALCIUM [Concomitant]
     Dosage: UNK
     Dates: start: 20070101
  5. ZINC [Concomitant]
  6. ASPIRIN [Concomitant]
     Dosage: UNK
     Dates: start: 19990101
  7. BISOPROLOL [Concomitant]
     Dosage: UNK
     Dates: start: 20080101
  8. TIKOSYN [Concomitant]
     Dosage: UNK
     Dates: end: 20091001

REACTIONS (4)
  - ANGER [None]
  - ATRIAL FIBRILLATION [None]
  - BACK PAIN [None]
  - DIZZINESS [None]
